FAERS Safety Report 24800763 (Version 5)
Quarter: 2025Q2

REPORT INFORMATION
  Report Type: Spontaneous
  Country: US (occurrence: US)
  Receive Date: 20250102
  Receipt Date: 20250625
  Transmission Date: 20250716
  Serious: No
  Sender: SANOFI AVENTIS
  Company Number: US-SA-2025SA001845

PATIENT
  Age: 72 Year
  Sex: Male

DRUGS (1)
  1. DUPIXENT [Suspect]
     Active Substance: DUPILUMAB
     Indication: Chronic obstructive pulmonary disease
     Dosage: 300 MG, QOW
     Route: 058
     Dates: start: 202412

REACTIONS (7)
  - Injection site nodule [Unknown]
  - Dyspnoea [Recovering/Resolving]
  - Cough [Recovered/Resolved]
  - Heart rate increased [Unknown]
  - Dysphonia [Not Recovered/Not Resolved]
  - Eye swelling [Not Recovered/Not Resolved]
  - Injection site swelling [Unknown]

NARRATIVE: CASE EVENT DATE: 20241201
